FAERS Safety Report 23034549 (Version 1)
Quarter: 2023Q4

REPORT INFORMATION
  Report Type: Spontaneous
  Country: US (occurrence: US)
  Receive Date: 20231005
  Receipt Date: 20231005
  Transmission Date: 20240110
  Serious: No
  Sender: FDA-Public Use
  Company Number: US-TAKEDA-2023TUS094650

PATIENT
  Age: 43 Year
  Sex: Male

DRUGS (1)
  1. HYQVIA [Suspect]
     Active Substance: HUMAN IMMUNOGLOBULIN G\HYALURONIDASE (HUMAN RECOMBINANT)
     Indication: Immunodeficiency
     Dosage: 800 MILLILITER, MONTHLY
     Route: 065

REACTIONS (4)
  - Infusion site haemorrhage [Unknown]
  - Infusion site discolouration [Unknown]
  - Infusion site bruising [Unknown]
  - Infusion site pain [Unknown]

NARRATIVE: CASE EVENT DATE: 20230924
